FAERS Safety Report 25909583 (Version 1)
Quarter: 2025Q4

REPORT INFORMATION
  Report Type: Report from Study
  Country: US (occurrence: US)
  Receive Date: 20251011
  Receipt Date: 20251011
  Transmission Date: 20260117
  Serious: Yes (Death, Other)
  Sender: GILEAD
  Company Number: US-GILEAD-2025-0731945

PATIENT
  Age: 52 Year
  Sex: Male

DRUGS (1)
  1. SACITUZUMAB GOVITECAN-HZIY [Suspect]
     Active Substance: SACITUZUMAB GOVITECAN-HZIY
     Indication: Neoplasm malignant
     Dosage: INFUSE 180 MG INTRAVENOUSLY ON DAYS 1 AND 8 OF 21 DAY CONTINOUS TREAMTMENT CYCLE
     Route: 042
     Dates: start: 20250809

REACTIONS (1)
  - Death [Fatal]

NARRATIVE: CASE EVENT DATE: 20251005
